FAERS Safety Report 6517265-2 (Version None)
Quarter: 2009Q4

REPORT INFORMATION
  Report Type: 
  Country: None (occurrence: None)
  Receive Date: 20091223
  Receipt Date: 20091214
  Transmission Date: 20100525
  Serious: Yes (Other)
  Sender: FDA-Public Use
  Company Number: CZ-AMGEN-US350779

PATIENT
  Age: 26 Year
  Sex: Female

DRUGS (2)
  1. ENBREL [Suspect]
     Indication: ANKYLOSING SPONDYLITIS
     Dosage: UNSPECIFIED DOSE DISCONTINUED ON AN UNSPECIFIED DATE
     Route: 058
  2. ENBREL [Suspect]
     Dosage: 50 MG WEEKLY AS OF JUN-2009
     Route: 058

REACTIONS (1)
  - LATENT TUBERCULOSIS [None]
